FAERS Safety Report 9847727 (Version 1)
Quarter: 2014Q1

REPORT INFORMATION
  Report Type: Spontaneous
  Country: GB (occurrence: GB)
  Receive Date: 20140128
  Receipt Date: 20140128
  Transmission Date: 20141002
  Serious: Yes (Other)
  Sender: FDA-Public Use
  Company Number: GB-RANBAXY-2014R1-77598

PATIENT
  Age: 30 Year
  Sex: Male

DRUGS (3)
  1. AMOXICILLIN [Suspect]
     Indication: INFECTION
     Dosage: UNK
     Route: 048
     Dates: start: 20140106
  2. AMLODIPINE [Concomitant]
     Indication: PRODUCT USED FOR UNKNOWN INDICATION
     Dosage: UNK
     Route: 065
  3. SODIUM BICARBONATE [Concomitant]
     Indication: PRODUCT USED FOR UNKNOWN INDICATION
     Dosage: UNK
     Route: 065

REACTIONS (1)
  - Tinnitus [Not Recovered/Not Resolved]
